FAERS Safety Report 13737642 (Version 1)
Quarter: 2017Q3

REPORT INFORMATION
  Report Type: Report from Study
  Country: US (occurrence: US)
  Receive Date: 20170710
  Receipt Date: 20170710
  Transmission Date: 20171127
  Serious: No
  Sender: FDA-Public Use
  Company Number: US-SAOL THERAPEUTICS-2016SAO00073

PATIENT
  Sex: Female

DRUGS (4)
  1. BACLOFEN. [Suspect]
     Active Substance: BACLOFEN
     Indication: PAIN
     Dosage: 249.29 ?G, \DAY
     Route: 037
  2. BUPIVACAINE. [Suspect]
     Active Substance: BUPIVACAINE
     Dosage: 8.310 MG, \DAY
     Route: 037
     Dates: start: 20160427
  3. BACLOFEN. [Suspect]
     Active Substance: BACLOFEN
     Indication: LUMBAR RADICULOPATHY
  4. DILAUDID [Suspect]
     Active Substance: HYDROMORPHONE HYDROCHLORIDE
     Dosage: 4.1549 MG, \DAY
     Route: 037
     Dates: start: 20160427

REACTIONS (3)
  - Implant site extravasation [Recovered/Resolved]
  - Off label use [Recovered/Resolved]
  - Complication associated with device [Recovered/Resolved]
